FAERS Safety Report 6781808-4 (Version None)
Quarter: 2010Q2

REPORT INFORMATION
  Report Type: 
  Country: None (occurrence: None)
  Receive Date: 20100621
  Receipt Date: 20100610
  Transmission Date: 20101027
  Serious: Yes (Hospitalization)
  Sender: FDA-Public Use
  Company Number: US-AMGEN-KDL417722

PATIENT
  Sex: Male

DRUGS (1)
  1. ENBREL [Suspect]
     Indication: RHEUMATOID ARTHRITIS
     Route: 058
     Dates: end: 20100211

REACTIONS (3)
  - ARTHROPATHY [None]
  - LOWER RESPIRATORY TRACT INFECTION BACTERIAL [None]
  - PLEURAL EFFUSION [None]
